FAERS Safety Report 12405976 (Version 1)
Quarter: 2016Q2

REPORT INFORMATION
  Report Type: Spontaneous
  Country: US (occurrence: None)
  Receive Date: 20160525
  Receipt Date: 20160525
  Transmission Date: 20160815
  Serious: No
  Sender: FDA-Public Use
  Company Number: None

PATIENT
  Age: 66 Year
  Sex: Male
  Weight: 73.48 kg

DRUGS (3)
  1. CIALIS [Suspect]
     Active Substance: TADALAFIL
     Indication: ERECTILE DYSFUNCTION
     Dosage: 1 TABLET (S) ONCE PER TWO WEEKS TAKEN BY MOUTH
     Route: 048
     Dates: start: 20160422, end: 20160503
  2. SIMVASTATIN. [Concomitant]
     Active Substance: SIMVASTATIN
  3. OMEGA 3 CAPSULES [Concomitant]

REACTIONS (4)
  - Drug ineffective [None]
  - Dyspnoea [None]
  - Blood pressure decreased [None]
  - Flushing [None]

NARRATIVE: CASE EVENT DATE: 20160422
